FAERS Safety Report 7639417-0 (Version None)
Quarter: 2011Q3

REPORT INFORMATION
  Report Type: 
  Country: None (occurrence: None)
  Receive Date: 20110727
  Receipt Date: 20080912
  Transmission Date: 20111222
  Serious: Yes (Hospitalization)
  Sender: FDA-Public Use
  Company Number: US-GLAXOSMITHKLINE-A0748284A

PATIENT
  Age: 56 Year
  Sex: Female
  Weight: 102 kg

DRUGS (9)
  1. AVANDIA [Suspect]
     Indication: TYPE 2 DIABETES MELLITUS
     Dosage: 4MG PER DAY
     Route: 048
     Dates: start: 20040201, end: 20070401
  2. GLUCOPHAGE [Concomitant]
  3. SIMVASTATIN [Concomitant]
  4. TOPROL-XL [Concomitant]
  5. METFORMIN HCL [Concomitant]
  6. PREDNISONE [Concomitant]
  7. NITROGLYCERIN [Concomitant]
  8. AVANDAMET [Suspect]
     Indication: TYPE 2 DIABETES MELLITUS
     Dosage: 4MG PER DAY
     Route: 048
     Dates: start: 20050501, end: 20060401
  9. NORVASC [Concomitant]

REACTIONS (2)
  - CARDIAC FAILURE CONGESTIVE [None]
  - ACUTE CORONARY SYNDROME [None]
